FAERS Safety Report 4880361-X (Version None)
Quarter: 2006Q1

REPORT INFORMATION
  Report Type: 
  Country: None (occurrence: None)
  Receive Date: 20060111
  Receipt Date: 20051229
  Transmission Date: 20060701
  Serious: Yes (Hospitalization, Other)
  Sender: FDA-Public Use
  Company Number: 200610005BWH

PATIENT
  Age: 67 Year
  Sex: Male
  Weight: 47.6277 kg

DRUGS (9)
  1. SORAFENIB [Suspect]
     Indication: METASTATIC RENAL CELL CARCINOMA
     Dosage: 400 MG, BID, ORAL
     Route: 048
     Dates: start: 20051215
  2. DILAUDID [Concomitant]
  3. SENOKOT [Concomitant]
  4. TEMAZEPAM [Concomitant]
  5. LEXAPRO [Concomitant]
  6. ATIVAN [Concomitant]
  7. COMPAZINE [Concomitant]
  8. SCOPOLAMINE [Concomitant]
  9. FENTANYL [Concomitant]

REACTIONS (4)
  - HAEMOTHORAX [None]
  - HYPOXIA [None]
  - MENTAL STATUS CHANGES [None]
  - PLEURAL EFFUSION [None]
